FAERS Safety Report 8545565-3 (Version None)
Quarter: 2012Q3

REPORT INFORMATION
  Report Type: 
  Country: None (occurrence: None)
  Receive Date: 20120727
  Receipt Date: 20111028
  Transmission Date: 20120928
  Serious: No
  Sender: FDA-Public Use
  Company Number: US-ASTRAZENECA-2011SE65621

PATIENT
  Age: 65 Year
  Sex: Female

DRUGS (2)
  1. TOPROL-XL [Concomitant]
     Route: 048
  2. SEROQUEL [Suspect]
     Indication: INSOMNIA
     Route: 048

REACTIONS (4)
  - NIGHTMARE [None]
  - OFF LABEL USE [None]
  - DIABETES MELLITUS [None]
  - WEIGHT INCREASED [None]
